FAERS Safety Report 8078289-X (Version None)
Quarter: 2012Q1

REPORT INFORMATION
  Report Type: 
  Country: None (occurrence: None)
  Receive Date: 20120123
  Receipt Date: 20120116
  Transmission Date: 20120608
  Serious: Yes (Hospitalization)
  Sender: FDA-Public Use
  Company Number: 2012SP002891

PATIENT
  Age: 45 Year
  Sex: Female

DRUGS (3)
  1. TEMODAL [Suspect]
     Indication: GLIOBLASTOMA MULTIFORME
     Dosage: 150 MG/M2;QD;PO 200 MG/M2;QD;PO
     Route: 048
     Dates: start: 20060329, end: 20060402
  2. TEMODAL [Suspect]
     Indication: GLIOBLASTOMA MULTIFORME
     Dosage: 150 MG/M2;QD;PO 200 MG/M2;QD;PO
     Route: 048
     Dates: start: 20060208, end: 20060212
  3. TEMODAL [Suspect]
     Indication: GLIOBLASTOMA MULTIFORME
     Dosage: 150 MG/M2;QD;PO 200 MG/M2;QD;PO
     Route: 048
     Dates: start: 20060308, end: 20060312

REACTIONS (1)
  - APPENDICITIS [None]
